FAERS Safety Report 24580919 (Version 1)
Quarter: 2024Q4

REPORT INFORMATION
  Report Type: Spontaneous
  Country: US (occurrence: US)
  Receive Date: 20241105
  Receipt Date: 20241105
  Transmission Date: 20250114
  Serious: No
  Sender: TEVA
  Company Number: US-TEVA-VS-3255012

PATIENT
  Age: 57 Year
  Sex: Female
  Weight: 94.35 kg

DRUGS (3)
  1. SOTALOL HYDROCHLORIDE [Suspect]
     Active Substance: SOTALOL HYDROCHLORIDE
     Indication: Product used for unknown indication
     Dosage: OVER 12 YEARS NOW
     Route: 065
     Dates: start: 2012
  2. LEVOTHYROXINE [Concomitant]
     Active Substance: LEVOTHYROXINE
     Indication: Product used for unknown indication
  3. BENADRYL [Concomitant]
     Active Substance: DIPHENHYDRAMINE HYDROCHLORIDE
     Indication: Product used for unknown indication

REACTIONS (6)
  - Pruritus [Not Recovered/Not Resolved]
  - Acne [Unknown]
  - Throat irritation [Not Recovered/Not Resolved]
  - Wrong technique in product usage process [Unknown]
  - Eyelids pruritus [Not Recovered/Not Resolved]
  - Ear pruritus [Not Recovered/Not Resolved]

NARRATIVE: CASE EVENT DATE: 20240901
